FAERS Safety Report 6404509-0 (Version None)
Quarter: 2009Q4

REPORT INFORMATION
  Report Type: 
  Country: None (occurrence: None)
  Receive Date: 20091016
  Receipt Date: 20091015
  Transmission Date: 20100525
  Serious: Yes (Disabling, Other)
  Sender: FDA-Public Use
  Company Number: ES-BRISTOL-MYERS SQUIBB COMPANY-14619696

PATIENT
  Sex: Female

DRUGS (1)
  1. LIPEMOL [Suspect]
     Dosage: APPROXIMATELY 2 YRS

REACTIONS (2)
  - NEUROPATHY PERIPHERAL [None]
  - PARANEOPLASTIC SYNDROME [None]
